FAERS Safety Report 5215317-0 (Version None)
Quarter: 2007Q1

REPORT INFORMATION
  Report Type: 
  Country: None (occurrence: None)
  Receive Date: 20070117
  Receipt Date: 20070105
  Transmission Date: 20070707
  Serious: Yes (Hospitalization)
  Sender: FDA-Public Use
  Company Number: WAES 0701USA01144

PATIENT
  Age: 76 Year
  Sex: Male

DRUGS (2)
  1. PRINIVIL [Suspect]
     Indication: HYPERTENSION
     Dosage: 20 MG/DAILY
     Route: 048
     Dates: start: 20061213, end: 20061201
  2. IRBESARTAN [Suspect]
     Indication: HYPERTENSION
     Dosage: 300 MG/DAILY
     Route: 048
     Dates: start: 20061213, end: 20061201

REACTIONS (1)
  - HYPERTENSION [None]
